FAERS Safety Report 14616705 (Version 1)
Quarter: 2018Q1

REPORT INFORMATION
  Report Type: Spontaneous
  Country: GB (occurrence: GB)
  Receive Date: 20180309
  Receipt Date: 20180309
  Transmission Date: 20180509
  Serious: Yes (Other)
  Sender: FDA-Public Use
  Company Number: GB-SUN PHARMACEUTICAL INDUSTRIES LTD-2018RR-165587

PATIENT
  Age: 78 Year
  Sex: Female
  Weight: 66 kg

DRUGS (3)
  1. CANESTEN [Suspect]
     Active Substance: CLOTRIMAZOLE
     Indication: SKIN IRRITATION
     Dosage: APPLIED SMALL AMOUNT ONCE AT 9AM
     Route: 061
     Dates: start: 20171116, end: 20171116
  2. PARACETAMOL [Concomitant]
     Active Substance: ACETAMINOPHEN
     Indication: PRURITUS
     Dosage: AT NIGHT, AND ANOTHER DURING THE NIGHT IF THE ITCHING WOKE ME UP
     Route: 065
  3. LORATADINE. [Suspect]
     Active Substance: LORATADINE
     Indication: RHINITIS
     Dosage: AT 19.30
     Route: 048
     Dates: start: 20171113, end: 20171115

REACTIONS (6)
  - Dizziness [Not Recovered/Not Resolved]
  - Vision blurred [Not Recovered/Not Resolved]
  - Rhinitis [Not Recovered/Not Resolved]
  - Drug ineffective [Unknown]
  - Headache [Not Recovered/Not Resolved]
  - Eye pruritus [Not Recovered/Not Resolved]

NARRATIVE: CASE EVENT DATE: 20171116
